FAERS Safety Report 4690848-0 (Version None)
Quarter: 2005Q2

REPORT INFORMATION
  Report Type: 
  Country: None (occurrence: None)
  Receive Date: 20050615
  Receipt Date: 20040512
  Transmission Date: 20051028
  Serious: Yes (Hospitalization)
  Sender: FDA-Public Use
  Company Number: JP-JNJFOC-20050600337

PATIENT
  Sex: Male
  Weight: 52 kg

DRUGS (13)
  1. REMICADE [Suspect]
     Dosage: 07-OCT  TREATMENT INEFFECTIVE
     Route: 042
  2. REMICADE [Suspect]
     Dosage: 06-SEP  TREATMENT INEFFECTIVE
     Route: 042
  3. REMICADE [Suspect]
     Indication: CROHN'S DISEASE
     Dosage: 09-AUG TREATMENT INEFFECTIVE
     Route: 042
  4. DAIKEN CHUUTOU [Concomitant]
     Indication: CROHN'S DISEASE
     Route: 049
  5. SALAZOPYRIN [Concomitant]
     Indication: CROHN'S DISEASE
     Route: 049
  6. PHELLOBERIN [Concomitant]
     Route: 049
  7. PHELLOBERIN [Concomitant]
     Route: 049
  8. PHELLOBERIN [Concomitant]
     Indication: CROHN'S DISEASE
     Route: 049
  9. CRAVIT [Concomitant]
     Indication: CROHN'S DISEASE
     Route: 049
  10. FENAZOX [Concomitant]
     Route: 049
  11. PREDONINE [Concomitant]
     Indication: CROHN'S DISEASE
     Route: 049
  12. ENTERAL NUTRITION [Concomitant]
  13. IMURAN [Concomitant]
     Indication: CROHN'S DISEASE
     Route: 049

REACTIONS (2)
  - DRUG INEFFECTIVE [None]
  - RECTAL CANCER [None]
